FAERS Safety Report 19458359 (Version 2)
Quarter: 2021Q3

REPORT INFORMATION
  Report Type: Spontaneous
  Country: US (occurrence: US)
  Receive Date: 20210624
  Receipt Date: 20210705
  Transmission Date: 20211014
  Serious: No
  Sender: FDA-Public Use
  Company Number: US-PFIZER INC-2021493610

PATIENT
  Age: 77 Year
  Sex: Female
  Weight: 68.04 kg

DRUGS (4)
  1. LYRICA [Suspect]
     Active Substance: PREGABALIN
     Indication: FIBROMYALGIA
     Dosage: 100 MG, 3X/DAY (100 MG CAPSULES 3 TIMES DAILY)
  2. LYRICA [Suspect]
     Active Substance: PREGABALIN
     Dosage: UNK
  3. LYRICA CR [Suspect]
     Active Substance: PREGABALIN
     Indication: FIBROMYALGIA
     Dosage: 100 MG, 3X/DAY (100MG CAPSULES 3 TIMES DAILY)
  4. LYRICA CR [Suspect]
     Active Substance: PREGABALIN
     Dosage: UNK

REACTIONS (5)
  - Asthenia [Unknown]
  - Dysstasia [Unknown]
  - Feeling abnormal [Not Recovered/Not Resolved]
  - Herpes zoster [Recovering/Resolving]
  - Pain [Not Recovered/Not Resolved]
